FAERS Safety Report 15233582 (Version 1)
Quarter: 2018Q3

REPORT INFORMATION
  Report Type: Spontaneous
  Country: US (occurrence: US)
  Receive Date: 20180709
  Receipt Date: 20180709
  Transmission Date: 20181010
  Serious: No
  Sender: FDA-Public Use
  Company Number: None

PATIENT
  Age: 43 Year
  Sex: Female

DRUGS (1)
  1. IMATINIB MES TAB 400MG [Suspect]
     Active Substance: IMATINIB MESYLATE
     Dates: start: 20180626, end: 20180702

REACTIONS (3)
  - Muscle spasms [None]
  - Thrombosis [None]
  - Myalgia [None]

NARRATIVE: CASE EVENT DATE: 20180629
